FAERS Safety Report 21839954 (Version 1)
Quarter: 2023Q1

REPORT INFORMATION
  Report Type: Report from Study
  Country: CO (occurrence: CO)
  Receive Date: 20230110
  Receipt Date: 20230110
  Transmission Date: 20230418
  Serious: Yes (Hospitalization, Other)
  Sender: FDA-Public Use
  Company Number: CO-ABBVIE-22K-036-4492719-00

PATIENT
  Sex: Female
  Weight: 90 kg

DRUGS (2)
  1. HUMIRA [Suspect]
     Active Substance: ADALIMUMAB
     Indication: Hidradenitis
     Route: 058
     Dates: start: 20201126, end: 20220517
  2. HUMIRA [Suspect]
     Active Substance: ADALIMUMAB
     Dosage: 80 MG?FIRST ADMIN DATE-2022
     Route: 058

REACTIONS (5)
  - Benign neoplasm of thymus [Recovering/Resolving]
  - Pain [Recovering/Resolving]
  - Cardiac murmur [Not Recovered/Not Resolved]
  - Chest discomfort [Not Recovered/Not Resolved]
  - Cough [Unknown]

NARRATIVE: CASE EVENT DATE: 20220101
